FAERS Safety Report 22099686 (Version 6)
Quarter: 2023Q2

REPORT INFORMATION
  Report Type: Spontaneous
  Country: US (occurrence: US)
  Receive Date: 20230315
  Receipt Date: 20230530
  Transmission Date: 20230721
  Serious: No
  Sender: FDA-Public Use
  Company Number: US-PFIZER INC-PV202300044857

PATIENT
  Age: 77 Year
  Sex: Female

DRUGS (1)
  1. IBRANCE [Suspect]
     Active Substance: PALBOCICLIB
     Dosage: 125 MG

REACTIONS (9)
  - Asthenia [Unknown]
  - Epistaxis [Unknown]
  - Rash [Recovered/Resolved]
  - Chills [Unknown]
  - Stomatitis [Unknown]
  - Rash [Recovered/Resolved]
  - Back pain [Recovered/Resolved]
  - Peripheral swelling [Unknown]
  - Feeling cold [Unknown]

NARRATIVE: CASE EVENT DATE: 20230410
